FAERS Safety Report 8902000 (Version 2)
Quarter: 2014Q1

REPORT INFORMATION
  Report Type: Spontaneous
  Country: US (occurrence: US)
  Receive Date: 20121109
  Receipt Date: 20140110
  Transmission Date: 20141002
  Serious: No
  Sender: FDA-Public Use
  Company Number: US-ASTRAZENECA-2012SE81711

PATIENT
  Age: 63 Year
  Sex: Male
  Weight: 92.5 kg

DRUGS (8)
  1. NEXIUM [Suspect]
     Route: 048
  2. CRESTOR [Suspect]
     Route: 048
     Dates: start: 2011, end: 201311
  3. CRESTOR [Suspect]
     Route: 048
  4. UNKNOWN STATIN DRUG [Suspect]
     Route: 065
  5. BLOOD THINNER UNKNOWN NAME [Concomitant]
     Route: 048
  6. GENERIC LOTREL [Concomitant]
     Indication: BLOOD PRESSURE
     Route: 048
  7. METFORMIN [Concomitant]
     Indication: DIABETES MELLITUS
     Route: 048
  8. AMMOROL [Concomitant]
     Indication: DIABETES MELLITUS
     Route: 048

REACTIONS (3)
  - Diabetes mellitus [Unknown]
  - Adverse event [Unknown]
  - Drug dose omission [Unknown]
